FAERS Safety Report 10096271 (Version 1)
Quarter: 2014Q2

REPORT INFORMATION
  Report Type: Spontaneous
  Country: US (occurrence: None)
  Receive Date: 20140410
  Receipt Date: 20140410
  Transmission Date: 20141212
  Serious: Yes (Hospitalization)
  Sender: FDA-Public Use
  Company Number: 2013-000998

PATIENT
  Age: 52 Year
  Sex: Female

DRUGS (4)
  1. LOESTRIN 24 FE [Suspect]
     Indication: OVARIAN CYST
     Route: 048
     Dates: end: 20130401
  2. LOESTRIN 24 FE [Suspect]
     Indication: CONTRACEPTION
     Route: 048
     Dates: end: 20130401
  3. BYSTOLIC (NEBIVOLOL HYDROCHLORIDE) [Concomitant]
  4. BABY ASPIRIN (ACETYLSALICYLIC ACID) [Concomitant]

REACTIONS (2)
  - Blood pressure increased [None]
  - Visual impairment [None]
